FAERS Safety Report 16570445 (Version 1)
Quarter: 2019Q3

REPORT INFORMATION
  Report Type: Spontaneous
  Country: US (occurrence: US)
  Receive Date: 20190715
  Receipt Date: 20190715
  Transmission Date: 20191004
  Serious: No
  Sender: FDA-Public Use
  Company Number: US-BEH-2019104138

PATIENT
  Age: 58 Year
  Sex: Female

DRUGS (17)
  1. HYDROCHLOROTHIAZIDE. [Concomitant]
     Active Substance: HYDROCHLOROTHIAZIDE
  2. LOSARTAN. [Concomitant]
     Active Substance: LOSARTAN
  3. METFORMIN [Concomitant]
     Active Substance: METFORMIN HYDROCHLORIDE
  4. MONTELUKAST [Concomitant]
     Active Substance: MONTELUKAST SODIUM
  5. POTASSIUM CLAVULANATE [Concomitant]
     Active Substance: CLAVULANATE POTASSIUM
  6. ROSUVASTATIN. [Concomitant]
     Active Substance: ROSUVASTATIN
  7. PHENAZOPYRIDINE. [Concomitant]
     Active Substance: PHENAZOPYRIDINE
  8. CARBAMAZEPIN [Concomitant]
     Active Substance: CARBAMAZEPINE
  9. LAMOTRIGINE. [Concomitant]
     Active Substance: LAMOTRIGINE
  10. HIZENTRA [Suspect]
     Active Substance: HUMAN IMMUNOGLOBULIN G
     Indication: HYPOGAMMAGLOBULINAEMIA
     Dosage: 60 MILLILITER, QW
     Route: 058
     Dates: start: 20171216
  11. CYCLOBENZAPRIN [Concomitant]
     Active Substance: CYCLOBENZAPRINE
  12. METRONIDAZOLE. [Concomitant]
     Active Substance: METRONIDAZOLE
  13. TOPIRAMATE. [Concomitant]
     Active Substance: TOPIRAMATE
  14. DULOXETINE. [Concomitant]
     Active Substance: DULOXETINE
  15. FLUTICASONE. [Concomitant]
     Active Substance: FLUTICASONE
  16. METOPROLOL SUCCINATE. [Concomitant]
     Active Substance: METOPROLOL SUCCINATE
  17. DEXILANT [Concomitant]
     Active Substance: DEXLANSOPRAZOLE

REACTIONS (2)
  - Pruritus [Recovered/Resolved]
  - Swelling [Recovered/Resolved]

NARRATIVE: CASE EVENT DATE: 20190703
